FAERS Safety Report 5848868-6 (Version None)
Quarter: 2008Q3

REPORT INFORMATION
  Report Type: 
  Country: None (occurrence: None)
  Receive Date: 20080818
  Receipt Date: 20080806
  Transmission Date: 20090109
  Serious: Yes (Other)
  Sender: FDA-Public Use
  Company Number: US-PFIZER INC-2008066045

PATIENT
  Sex: Male
  Weight: 78.181 kg

DRUGS (7)
  1. VIAGRA [Suspect]
     Indication: ERECTILE DYSFUNCTION
  2. AMLODIPINE [Suspect]
     Indication: HYPERTENSION
  3. BENAZEPRIL HYDROCHLORIDE [Suspect]
     Indication: HYPERTENSION
  4. CIALIS [Suspect]
     Indication: ERECTILE DYSFUNCTION
  5. LEVITRA [Suspect]
     Indication: ERECTILE DYSFUNCTION
  6. IBUPROFEN [Concomitant]
  7. ANTIBIOTICS [Concomitant]

REACTIONS (2)
  - DRUG INEFFECTIVE [None]
  - HYPERTENSION [None]
